FAERS Safety Report 6976854-1 (Version None)
Quarter: 2010Q3

REPORT INFORMATION
  Report Type: 
  Country: None (occurrence: None)
  Receive Date: 20100910
  Receipt Date: 20100907
  Transmission Date: 20110219
  Serious: Yes (Hospitalization)
  Sender: FDA-Public Use
  Company Number: A0880527A

PATIENT
  Age: 65 Year
  Sex: Female
  Weight: 68.2 kg

DRUGS (4)
  1. WELLBUTRIN [Suspect]
     Indication: DEPRESSION
     Route: 048
     Dates: end: 20090101
  2. ZOLOFT [Suspect]
     Indication: DEPRESSION
     Dosage: 150MG PER DAY
     Route: 048
  3. PRISTIQ [Suspect]
     Indication: DEPRESSION
     Dosage: 50MG PER DAY
     Route: 048
     Dates: start: 20100812
  4. CYMBALTA [Suspect]
     Indication: DEPRESSION
     Route: 048

REACTIONS (9)
  - ADVERSE EVENT [None]
  - ANXIETY [None]
  - ASTHENIA [None]
  - DRUG INEFFECTIVE [None]
  - FEELING ABNORMAL [None]
  - MUSCULAR WEAKNESS [None]
  - PRODUCT QUALITY ISSUE [None]
  - RESPIRATORY RATE DECREASED [None]
  - SLEEP DISORDER [None]
